FAERS Safety Report 4262066-1 (Version None)
Quarter: 2004Q1

REPORT INFORMATION
  Report Type: 
  Country: None (occurrence: None)
  Receive Date: 20040102
  Receipt Date: 20031218
  Transmission Date: 20041129
  Serious: Yes (Other)
  Sender: FDA-Public Use
  Company Number: DK-GLAXOSMITHKLINE-B0318175A

PATIENT
  Age: 47 Year
  Sex: Female

DRUGS (1)
  1. SEROXAT [Suspect]

REACTIONS (6)
  - DIZZINESS [None]
  - DRUG DEPENDENCE [None]
  - DRUG WITHDRAWAL SYNDROME [None]
  - LIBIDO DECREASED [None]
  - NAUSEA [None]
  - TINNITUS [None]
